FAERS Safety Report 6413587-4 (Version None)
Quarter: 2009Q4

REPORT INFORMATION
  Report Type: 
  Country: None (occurrence: None)
  Receive Date: 20091023
  Receipt Date: 20091023
  Transmission Date: 20100525
  Serious: Yes (Hospitalization)
  Sender: FDA-Public Use
  Company Number: None

PATIENT
  Age: 79 Year

DRUGS (1)
  1. LISINOPRIL [Suspect]
     Indication: HYPERTENSION
     Dates: start: 20060227, end: 20091009

REACTIONS (4)
  - ANGIOEDEMA [None]
  - DROOLING [None]
  - DYSARTHRIA [None]
  - HYPERLIPIDAEMIA [None]
